FAERS Safety Report 8136188-9 (Version None)
Quarter: 2012Q1

REPORT INFORMATION
  Report Type: 
  Country: None (occurrence: None)
  Receive Date: 20120214
  Receipt Date: 20120210
  Transmission Date: 20120608
  Serious: Yes (Death, Hospitalization)
  Sender: FDA-Public Use
  Company Number: PHHY2012ES011634

PATIENT
  Age: 73 Year
  Sex: Female

DRUGS (6)
  1. AMIODARONE HCL [Suspect]
     Indication: CHEST PAIN
     Dosage: 200 MG, QD
  2. LEVOTHYROXINE SODIUM [Concomitant]
     Indication: CHEST PAIN
     Dosage: UNK UKN, UNK
  3. CALCIUM W/COLECALCIFEROL [Concomitant]
     Indication: CHEST PAIN
     Dosage: UNK UKN, UNK
  4. ROSUVASTATIN [Interacting]
     Indication: CHEST PAIN
     Dosage: 20 MG, QD
  5. ACENOCOUMAROL [Concomitant]
     Indication: CHEST PAIN
     Dosage: UNK UKN, UNK
  6. FENOFIBRATE [Interacting]
     Indication: CHEST PAIN
     Dosage: 160 MG, QD

REACTIONS (10)
  - RHABDOMYOLYSIS [None]
  - HYPERTRIGLYCERIDAEMIA [None]
  - BUNDLE BRANCH BLOCK LEFT [None]
  - DRUG INTERACTION [None]
  - BLOOD CREATININE INCREASED [None]
  - HEPATIC FAILURE [None]
  - HEPATIC ENZYME INCREASED [None]
  - HYPERCHOLESTEROLAEMIA [None]
  - BLOOD CREATINE PHOSPHOKINASE INCREASED [None]
  - BLOOD LACTATE DEHYDROGENASE INCREASED [None]
